FAERS Safety Report 7519180-4 (Version None)
Quarter: 2011Q2

REPORT INFORMATION
  Report Type: 
  Country: None (occurrence: None)
  Receive Date: 20110602
  Receipt Date: 20110527
  Transmission Date: 20111010
  Serious: Yes (Hospitalization)
  Sender: FDA-Public Use
  Company Number: CN-ROCHE-779817

PATIENT
  Age: 59 Year
  Sex: Female

DRUGS (2)
  1. RIBAVARIN [Concomitant]
     Indication: HEPATITIS C
     Route: 048
     Dates: start: 20100726
  2. PEGINTERFERON ALFA-2A [Suspect]
     Indication: HEPATITIS C
     Route: 058
     Dates: start: 20100726

REACTIONS (1)
  - URINARY INCONTINENCE [None]
